FAERS Safety Report 12906712 (Version 1)
Quarter: 2016Q4

REPORT INFORMATION
  Report Type: Spontaneous
  Country: US (occurrence: US)
  Receive Date: 20161101
  Receipt Date: 20161101
  Transmission Date: 20170207
  Serious: Yes (Other)
  Sender: FDA-Public Use
  Company Number: None

PATIENT
  Age: 52 Year
  Sex: Female
  Weight: 90 kg

DRUGS (1)
  1. MULTIHANCE [Suspect]
     Active Substance: GADOBENATE DIMEGLUMINE
     Dates: start: 20161101, end: 20161101

REACTIONS (3)
  - Ear pruritus [None]
  - Pruritus [None]
  - Feeling abnormal [None]

NARRATIVE: CASE EVENT DATE: 20161101
